FAERS Safety Report 22388964 (Version 1)
Quarter: 2023Q2

REPORT INFORMATION
  Report Type: Spontaneous
  Country: US (occurrence: None)
  Receive Date: 20230530
  Receipt Date: 20230530
  Transmission Date: 20230721
  Serious: No
  Sender: FDA-Public Use
  Company Number: None

PATIENT
  Sex: Female

DRUGS (9)
  1. LENALIDOMIDE [Suspect]
     Active Substance: LENALIDOMIDE
     Indication: Plasma cell myeloma
     Dosage: FREQUENCY : DAILY;?
     Route: 048
  2. ACYCLOVIR [Concomitant]
  3. ATORVASTATIN [Concomitant]
  4. COREG [Concomitant]
  5. DARZALEX [Concomitant]
  6. DEXAMETHASONE [Concomitant]
  7. ONDANSETRON [Concomitant]
  8. VITAMIN B-12 [Concomitant]
  9. AMOXICILLIN [Concomitant]

REACTIONS (3)
  - Blood immunoglobulin G increased [None]
  - Light chain analysis increased [None]
  - Blood pressure increased [None]
